FAERS Safety Report 11097684 (Version 7)
Quarter: 2016Q2

REPORT INFORMATION
  Report Type: Report from Study
  Country: ES (occurrence: ES)
  Receive Date: 20150507
  Receipt Date: 20160429
  Transmission Date: 20160815
  Serious: Yes (Death, Life-Threatening, Other)
  Sender: FDA-Public Use
  Company Number: ES-GILEAD-2015-0152221

PATIENT
  Age: 64 Year
  Sex: Female
  Weight: 75.5 kg

DRUGS (45)
  1. TRAMADOL. [Concomitant]
     Active Substance: TRAMADOL
     Dosage: UNK
     Route: 048
     Dates: start: 20150303, end: 2015
  2. PRIMPERAN [Concomitant]
     Active Substance: METOCLOPRAMIDE HYDROCHLORIDE
     Dosage: UNK
     Route: 048
     Dates: start: 20150305, end: 20150510
  3. TAZOCEL [Concomitant]
     Active Substance: PIPERACILLIN SODIUM\TAZOBACTAM SODIUM
     Route: 042
     Dates: start: 20150502, end: 20150504
  4. FUROSEMIDA                         /00032601/ [Concomitant]
     Active Substance: FUROSEMIDE
     Route: 042
     Dates: start: 20150503, end: 20150510
  5. RITUXIMAB [Suspect]
     Active Substance: RITUXIMAB
     Dosage: 870 MG, CYCLICAL
     Route: 042
     Dates: start: 20150416, end: 20150416
  6. ONDANSETRON [Concomitant]
     Active Substance: ONDANSETRON
     Dosage: UNK
     Route: 042
     Dates: start: 20150305, end: 20150417
  7. PRAVASTATINA [Concomitant]
     Active Substance: PRAVASTATIN SODIUM
     Dosage: UNK
     Route: 048
     Dates: start: 20150316, end: 20150423
  8. TRAMADOL. [Concomitant]
     Active Substance: TRAMADOL
     Dosage: UNK
     Route: 042
     Dates: start: 20150430, end: 20150430
  9. VOLTAREN [Concomitant]
     Active Substance: DICLOFENAC SODIUM
     Dosage: UNK
     Route: 048
     Dates: start: 20150425, end: 20150507
  10. LIDOCAINA                          /00033401/ [Concomitant]
     Dosage: UNK
     Route: 048
     Dates: start: 20150424, end: 20150511
  11. CALAMINE [Concomitant]
     Active Substance: CALAMINE\FERRIC OXIDE RED\ZINC OXIDE
     Dosage: UNK
     Route: 061
     Dates: start: 20150427, end: 20150511
  12. CLORHEXIDINA [Concomitant]
     Route: 048
     Dates: start: 20150428, end: 20150429
  13. BENDAMUSTINE [Suspect]
     Active Substance: BENDAMUSTINE
     Dosage: 157 MG, UNK
     Route: 042
     Dates: start: 20150306, end: 20150306
  14. BENDAMUSTINE [Suspect]
     Active Substance: BENDAMUSTINE
     Dosage: 157 MG, UNK
     Route: 042
     Dates: start: 20150416, end: 20150416
  15. RAMIPRIL. [Concomitant]
     Active Substance: RAMIPRIL
     Dosage: UNK
     Route: 048
     Dates: start: 2015, end: 20150423
  16. APIRETAL [Concomitant]
     Dosage: UNK
     Route: 048
     Dates: start: 20150316, end: 20150511
  17. RANITIDINE. [Concomitant]
     Active Substance: RANITIDINE
     Dosage: UNK
     Route: 048
     Dates: start: 20150306, end: 20150511
  18. FEBRECTAL                          /00020001/ [Concomitant]
     Route: 048
     Dates: start: 20150426, end: 20150428
  19. DIAZEPAM. [Concomitant]
     Active Substance: DIAZEPAM
     Route: 048
     Dates: start: 20150501, end: 20150501
  20. RED BLOOD CELLS, CONCENTRATED [Concomitant]
     Active Substance: HUMAN RED BLOOD CELL
     Indication: ANAEMIA
     Route: 042
     Dates: start: 20150502, end: 20150502
  21. LYRICA [Concomitant]
     Active Substance: PREGABALIN
     Route: 042
     Dates: start: 20150503, end: 20150503
  22. IDELALISIB [Suspect]
     Active Substance: IDELALISIB
     Indication: CHRONIC LYMPHOCYTIC LEUKAEMIA
     Dosage: 150 MG, BID
     Route: 048
     Dates: start: 20150305, end: 20150429
  23. BENDAMUSTINE [Suspect]
     Active Substance: BENDAMUSTINE
     Indication: CHRONIC LYMPHOCYTIC LEUKAEMIA
     Dosage: 157 MG, UNK
     Route: 042
     Dates: start: 20150305, end: 20150305
  24. RITUXIMAB [Suspect]
     Active Substance: RITUXIMAB
     Indication: CHRONIC LYMPHOCYTIC LEUKAEMIA
     Dosage: 653 MG, CYCLICAL
     Route: 042
     Dates: start: 20150305, end: 20150305
  25. PARACETAMOL [Concomitant]
     Active Substance: ACETAMINOPHEN
     Dosage: UNK
     Route: 048
     Dates: start: 20150424, end: 20150504
  26. ALOPURINOL [Concomitant]
     Active Substance: ALLOPURINOL
     Dosage: UNK
     Route: 048
     Dates: start: 20150305, end: 20150423
  27. ROMILAR                            /00048102/ [Concomitant]
     Route: 048
     Dates: start: 20150425, end: 20150425
  28. ENALAPRIL [Concomitant]
     Active Substance: ENALAPRIL
     Route: 048
     Dates: start: 20150430, end: 20150507
  29. SERUM PHYSIOLOGICAL [Concomitant]
     Active Substance: SODIUM CHLORIDE
     Dosage: UNK
     Route: 042
     Dates: start: 20150424, end: 20150428
  30. FENTANILO                          /00174601/ [Concomitant]
     Route: 042
     Dates: start: 20150428, end: 20150510
  31. BISOPROLOL [Concomitant]
     Active Substance: BISOPROLOL
     Route: 048
     Dates: start: 20150503, end: 20150503
  32. ALMAX [Concomitant]
     Dosage: UNK
     Route: 048
     Dates: start: 20150503, end: 20150511
  33. HIDROSALURETIL [Concomitant]
     Active Substance: HYDROCHLOROTHIAZIDE
     Dosage: UNK
     Route: 048
     Dates: start: 2015, end: 20150423
  34. DEXCLORFENIRAMINA [Concomitant]
     Dosage: UNK
     Route: 042
     Dates: start: 20150205, end: 20150416
  35. PARACETAMOL [Concomitant]
     Active Substance: ACETAMINOPHEN
     Dosage: UNK
     Route: 042
     Dates: start: 20150305, end: 20150416
  36. NOLOTIL                            /00473101/ [Concomitant]
     Active Substance: METAMIZOLE
     Dosage: UNK
     Route: 048
     Dates: start: 20150301, end: 2015
  37. BENDAMUSTINE [Suspect]
     Active Substance: BENDAMUSTINE
     Dosage: 157 MG, UNK
     Route: 042
     Dates: start: 20150417, end: 20150417
  38. ENANTYUM [Concomitant]
     Active Substance: DEXKETOPROFEN TROMETAMOL
     Indication: ABDOMINAL PAIN
     Dosage: UNK
     Route: 048
     Dates: start: 20150303, end: 2015
  39. AMIKACINE                          /00391001/ [Concomitant]
     Active Substance: AMIKACIN
     Dosage: UNK
     Route: 042
     Dates: start: 20150424, end: 20150425
  40. DEXAMETHASONE. [Concomitant]
     Active Substance: DEXAMETHASONE
     Dosage: UNK
     Route: 042
     Dates: start: 20150305, end: 20150416
  41. CEFEPIME [Concomitant]
     Active Substance: CEFEPIME HYDROCHLORIDE
     Dosage: UNK
     Route: 042
     Dates: start: 20150424, end: 20150429
  42. ACICLOVIR [Concomitant]
     Active Substance: ACYCLOVIR
     Dosage: UNK
     Route: 048
     Dates: start: 20150427, end: 20150504
  43. NOLOTIL                            /00473101/ [Concomitant]
     Active Substance: METAMIZOLE
     Dosage: UNK
     Route: 042
     Dates: start: 20150429, end: 20150430
  44. MORPHINE HYDROCHLORIDE [Concomitant]
     Active Substance: MORPHINE HYDROCHLORIDE
     Route: 042
     Dates: start: 20150501, end: 20150507
  45. DOLANTINA [Concomitant]
     Active Substance: MEPERIDINE HYDROCHLORIDE
     Route: 042
     Dates: start: 20150503, end: 20150503

REACTIONS (1)
  - Cytomegalovirus infection [Fatal]

NARRATIVE: CASE EVENT DATE: 20150504
